FAERS Safety Report 11119548 (Version 1)
Quarter: 2015Q2

REPORT INFORMATION
  Report Type: Spontaneous
  Country: US (occurrence: US)
  Receive Date: 20150518
  Receipt Date: 20150518
  Transmission Date: 20150821
  Serious: Yes (Death, Hospitalization)
  Sender: FDA-Public Use
  Company Number: US-CIPLA LTD.-2015US03792

PATIENT

DRUGS (2)
  1. CISPLATIN. [Suspect]
     Active Substance: CISPLATIN
     Indication: PALLIATIVE CARE
     Dosage: 50 MG/M2, ON DAYS 1 AND 15 OF 4 WEEK CYCLE
  2. GEMCITABINE [Suspect]
     Active Substance: GEMCITABINE\GEMCITABINE HYDROCHLORIDE
     Indication: PALLIATIVE CARE
     Dosage: 1000 MG/M2, ON DAYS 1, 8, AND 15 OF 4 WEEK CYCLE

REACTIONS (5)
  - Atelectasis [Unknown]
  - Aortic dissection [Unknown]
  - Pleural effusion [Unknown]
  - Blood pressure increased [Unknown]
  - Death [Fatal]
